FAERS Safety Report 8145710-8 (Version None)
Quarter: 2012Q1

REPORT INFORMATION
  Report Type: 
  Country: None (occurrence: None)
  Receive Date: 20120217
  Receipt Date: 20120215
  Transmission Date: 20120608
  Serious: Yes (Death)
  Sender: FDA-Public Use
  Company Number: EE-B.I. PHARMACEUTICALS,INC./RIDGEFIELD-2012-AP-00101AP

PATIENT
  Sex: Male
  Weight: 65 kg

DRUGS (2)
  1. PRADAXA [Suspect]
     Indication: PROPHYLAXIS
     Dosage: 300 MG
     Route: 048
     Dates: start: 20111201, end: 20120117
  2. LASIX [Concomitant]
     Indication: CARDIAC FAILURE
     Dosage: 60 MG
     Dates: start: 20110801, end: 20120117

REACTIONS (1)
  - NEOPLASM MALIGNANT [None]
